FAERS Safety Report 10290063 (Version 1)
Quarter: 2014Q3

REPORT INFORMATION
  Report Type: Spontaneous
  Country: US (occurrence: US)
  Receive Date: 20140710
  Receipt Date: 20140710
  Transmission Date: 20150326
  Serious: No
  Sender: FDA-Public Use
  Company Number: US-PFIZER INC-2014188433

PATIENT
  Age: 51 Year
  Sex: Female
  Weight: 92.5 kg

DRUGS (2)
  1. LYRICA [Suspect]
     Active Substance: PREGABALIN
     Indication: FIBROMYALGIA
     Dosage: 75 MG, TWO TO THREE TIMES A DAY
     Route: 048
     Dates: start: 20140605
  2. PROTONIX [Concomitant]
     Active Substance: PANTOPRAZOLE SODIUM
     Indication: GASTROOESOPHAGEAL REFLUX DISEASE
     Dosage: UNK

REACTIONS (4)
  - Fatigue [Unknown]
  - Asthenia [Unknown]
  - Impaired work ability [Unknown]
  - Apathy [Unknown]

NARRATIVE: CASE EVENT DATE: 2014
